FAERS Safety Report 5367441-X (Version None)
Quarter: 2007Q2

REPORT INFORMATION
  Report Type: 
  Country: None (occurrence: None)
  Receive Date: 20070622
  Receipt Date: 20060808
  Transmission Date: 20071010
  Serious: No
  Sender: FDA-Public Use
  Company Number: US-ASTRAZENECA-2006UW15744

PATIENT
  Age: 9 Year
  Sex: Male
  Weight: 24.5 kg

DRUGS (6)
  1. PULMICORT [Suspect]
     Indication: RESPIRATORY DISORDER
     Route: 055
     Dates: start: 20060201, end: 20060801
  2. PULMICORT [Suspect]
     Route: 055
     Dates: start: 20060801
  3. SINGULAIR [Concomitant]
  4. FOCALIN [Concomitant]
  5. RHINOCORT [Concomitant]
  6. ZYRTEC [Concomitant]

REACTIONS (2)
  - CHEST DISCOMFORT [None]
  - DRUG INEFFECTIVE [None]
